FAERS Safety Report 5126677-3 (Version None)
Quarter: 2006Q4

REPORT INFORMATION
  Report Type: 
  Country: None (occurrence: None)
  Receive Date: 20061012
  Receipt Date: 20061012
  Transmission Date: 20070319
  Serious: Yes (Other)
  Sender: FDA-Public Use
  Company Number: None

PATIENT
  Age: 28 Year
  Sex: Female
  Weight: 93.441 kg

DRUGS (9)
  1. MAXALT-MLT [Suspect]
     Indication: MIGRAINE
     Dosage: 1 10MG TABLET  UP TO 3 TAB/24 HOURS   047
     Dates: start: 20060925
  2. WELLBUTRIN XL [Concomitant]
  3. ZYRTEC-D [Concomitant]
  4. PROTONIX [Concomitant]
  5. ALEVE [Concomitant]
  6. CYMBALTA [Concomitant]
  7. ROZAREM [Concomitant]
  8. ZANTAC [Concomitant]
  9. ZANAFLEX [Concomitant]

REACTIONS (6)
  - CHEST PAIN [None]
  - CONDITION AGGRAVATED [None]
  - DIZZINESS [None]
  - HEADACHE [None]
  - NAUSEA [None]
  - PHARMACEUTICAL PRODUCT COMPLAINT [None]
